FAERS Safety Report 5179228-1 (Version None)
Quarter: 2006Q4

REPORT INFORMATION
  Report Type: 
  Country: None (occurrence: None)
  Receive Date: 20061219
  Receipt Date: 20061101
  Transmission Date: 20070319
  Serious: Yes (Other)
  Sender: FDA-Public Use
  Company Number: 2006UW22534

PATIENT
  Age: 7 Year
  Sex: Female
  Weight: 34 kg

DRUGS (5)
  1. PULMICORT [Suspect]
     Indication: HYPERSENSITIVITY
     Route: 055
     Dates: start: 20050101, end: 20050101
  2. PULMICORT [Suspect]
     Route: 055
     Dates: start: 20061030, end: 20061030
  3. BUDECORT [Suspect]
     Indication: HYPERSENSITIVITY
     Route: 045
     Dates: start: 20040101
  4. BUDECORT [Suspect]
     Indication: ILL-DEFINED DISORDER
     Route: 045
     Dates: start: 20040101
  5. SERETIDE [Concomitant]
     Indication: HYPERSENSITIVITY
     Dosage: BID IN CRISIS
     Route: 055
     Dates: start: 20050101

REACTIONS (2)
  - DRUG INEFFECTIVE [None]
  - TACHYCARDIA [None]
